FAERS Safety Report 9144948 (Version 7)
Quarter: 2014Q1

REPORT INFORMATION
  Report Type: Spontaneous
  Country: US (occurrence: US)
  Receive Date: 20130307
  Receipt Date: 20140131
  Transmission Date: 20141002
  Serious: Yes (Death, Other)
  Sender: FDA-Public Use
  Company Number: US-BIOGENIDEC-2013BI020850

PATIENT
  Age: 57 Year
  Sex: Male

DRUGS (9)
  1. TYSABRI [Suspect]
     Indication: MULTIPLE SCLEROSIS
     Route: 042
     Dates: start: 20090325, end: 20130207
  2. TEMAZAPAM [Concomitant]
  3. BACLOFEN [Concomitant]
  4. LEXAPRO [Concomitant]
  5. NAPROXEN [Concomitant]
  6. CALCIUM WITH VITAMIN D [Concomitant]
  7. VICODAN [Concomitant]
  8. ZOFRAN [Concomitant]
  9. LOVENOX [Concomitant]

REACTIONS (8)
  - Lung carcinoma cell type unspecified stage IV [Fatal]
  - Lymphoma [Unknown]
  - Metastases to central nervous system [Unknown]
  - Head and neck cancer stage IV [Fatal]
  - Muscular weakness [Not Recovered/Not Resolved]
  - Sepsis [Fatal]
  - Cardiogenic shock [Fatal]
  - Acute myocardial infarction [Fatal]
